FAERS Safety Report 4283862-0 (Version None)
Quarter: 2004Q1

REPORT INFORMATION
  Report Type: 
  Country: None (occurrence: None)
  Receive Date: 20040130
  Receipt Date: 20040120
  Transmission Date: 20041129
  Serious: Yes (Other)
  Sender: FDA-Public Use
  Company Number: HQWYE915029DEC03

PATIENT
  Age: 75 Year
  Sex: Female

DRUGS (5)
  1. ETODOLAC [Suspect]
     Indication: SPONDYLOLISTHESIS ACQUIRED
     Dosage: 20 MG DAILY ORAL
     Route: 048
     Dates: start: 20030909, end: 20031031
  2. SELBEX (TEPRENONE) [Concomitant]
  3. HERBAL PREPARATION (HERBAL PREPARATION) [Concomitant]
  4. SPALT SCHMERZGEL (FELBINAC) [Concomitant]
  5. INDOMETACIN (INDOMETACIN0 [Concomitant]

REACTIONS (2)
  - DYSGEUSIA [None]
  - PAROSMIA [None]
